FAERS Safety Report 4323715-2 (Version None)
Quarter: 2004Q1

REPORT INFORMATION
  Report Type: 
  Country: None (occurrence: None)
  Receive Date: 20040323
  Receipt Date: 20040309
  Transmission Date: 20041129
  Serious: Yes (Hospitalization)
  Sender: FDA-Public Use
  Company Number: DEU-2004-0000717

PATIENT
  Age: 56 Year
  Sex: Female

DRUGS (16)
  1. MORPHINE SULFATE [Suspect]
     Indication: PAIN
     Dosage: INTRATHECAL
     Route: 037
  2. VALORON N (TILIDINE HYDROCHLORIDE) [Concomitant]
  3. ACE INHIBITOR NOS [Concomitant]
  4. FUROSEMIDE [Concomitant]
  5. CEBION (ASCORBIC ACID) [Concomitant]
  6. NEXIUM [Concomitant]
  7. ARIMIDEX ^ZENECA^ (ANASTROZOLE) [Concomitant]
  8. POTASSIUM IODIDE (POTASSIUM IODIDE) [Concomitant]
  9. LEVOTHYROXINE SODIUM [Concomitant]
  10. VITAMIN E [Concomitant]
  11. PROMETHAZINE HYDROCHLORIDE TAB [Concomitant]
  12. BIFITERAL ^SOLVAY ARZNEIMITTEL ^ (LACTULOSE) [Concomitant]
  13. METAMIZOLE SODIUM [Concomitant]
  14. SODIUM PICOSULFATE (SODIUM PICOSULFATE) [Concomitant]
  15. IBUHEXAL [Concomitant]
  16. MARCUMAR [Concomitant]

REACTIONS (1)
  - KNEE ARTHROPLASTY [None]
